FAERS Safety Report 18927695 (Version 1)
Quarter: 2021Q1

REPORT INFORMATION
  Report Type: Spontaneous
  Country: US (occurrence: US)
  Receive Date: 20210223
  Receipt Date: 20210223
  Transmission Date: 20210420
  Serious: Yes (Other)
  Sender: FDA-Public Use
  Company Number: None

PATIENT
  Sex: Male

DRUGS (1)
  1. DEXMETHYLPHENIDATE 10MG MP50 ER [Suspect]
     Active Substance: DEXMETHYLPHENIDATE

REACTIONS (1)
  - Drug ineffective [None]
